FAERS Safety Report 16025670 (Version 1)
Quarter: 2019Q1

REPORT INFORMATION
  Report Type: Spontaneous
  Country: US (occurrence: US)
  Receive Date: 20190302
  Receipt Date: 20190302
  Transmission Date: 20190418
  Serious: Yes (Hospitalization, Other)
  Sender: FDA-Public Use
  Company Number: US-ZYDUS-034284

PATIENT
  Age: 13 Year
  Sex: Female
  Weight: 64.7 kg

DRUGS (1)
  1. LEVETIRACETAM. [Suspect]
     Active Substance: LEVETIRACETAM
     Indication: SEIZURE
     Route: 048

REACTIONS (7)
  - Vomiting [Recovered/Resolved]
  - Headache [Recovered/Resolved]
  - Mental disorder [Recovered/Resolved]
  - Papilloedema [Recovered/Resolved]
  - Meningitis aseptic [Recovered/Resolved]
  - Confusional state [Recovered/Resolved]
  - Photophobia [Recovered/Resolved]
